FAERS Safety Report 7097244-X (Version None)
Quarter: 2010Q4

REPORT INFORMATION
  Report Type: 
  Country: None (occurrence: None)
  Receive Date: 20101111
  Receipt Date: 20100520
  Transmission Date: 20110411
  Serious: No
  Sender: FDA-Public Use
  Company Number: US-KINGPHARMUSA00001-K201000638

PATIENT
  Age: 61 Year
  Sex: Female
  Weight: 58.957 kg

DRUGS (3)
  1. LEVOXYL [Suspect]
     Indication: THYROID DISORDER
     Dosage: 112 MCG, QD
     Route: 048
     Dates: start: 20000101
  2. PREMPRO [Concomitant]
     Dosage: UNK
  3. AMBIEN [Concomitant]
     Dosage: UNK

REACTIONS (1)
  - DYSGEUSIA [None]
